FAERS Safety Report 15955883 (Version 3)
Quarter: 2019Q2

REPORT INFORMATION
  Report Type: Spontaneous
  Country: US (occurrence: US)
  Receive Date: 20190213
  Receipt Date: 20190523
  Transmission Date: 20190711
  Serious: Yes (Life-Threatening, Hospitalization)
  Sender: FDA-Public Use
  Company Number: US-ELI_LILLY_AND_COMPANY-US201902002827

PATIENT
  Age: 67 Year
  Sex: Male
  Weight: 80.3 kg

DRUGS (6)
  1. ZYPREXA [Suspect]
     Active Substance: OLANZAPINE
     Indication: AFFECTIVE DISORDER
     Dosage: 5 MG, DAILY (AT BED TIME)
     Route: 048
     Dates: start: 20181031, end: 20181115
  2. METOPROLOL. [Concomitant]
     Active Substance: METOPROLOL
     Indication: BLOOD PRESSURE MEASUREMENT
     Dosage: UNK UNK, UNKNOWN
     Route: 065
  3. ZYPREXA [Suspect]
     Active Substance: OLANZAPINE
     Indication: SLEEP DISORDER
  4. GABAPENTIN. [Concomitant]
     Active Substance: GABAPENTIN
     Indication: ANXIETY
     Dosage: 100 MG, 2 CAPSULES DAILY AND 4 CAPSULES AT BEDTIME
     Route: 048
     Dates: start: 20170821
  5. GABAPENTIN. [Concomitant]
     Active Substance: GABAPENTIN
     Indication: ALCOHOLISM
     Dosage: 200 MG, DAILY
     Route: 048
  6. GABAPENTIN. [Concomitant]
     Active Substance: GABAPENTIN
     Indication: ANXIOLYTIC THERAPY
     Dosage: 600 MG, QHS
     Route: 048
     Dates: start: 20181120

REACTIONS (9)
  - Major depression [Recovered/Resolved]
  - Homicidal ideation [Recovered/Resolved]
  - Suicidal ideation [Recovered/Resolved]
  - Irritability [Unknown]
  - Nightmare [Unknown]
  - Anger [Unknown]
  - Panic attack [Unknown]
  - Asthenia [Unknown]
  - Insomnia [Unknown]

NARRATIVE: CASE EVENT DATE: 201811
